FAERS Safety Report 24701280 (Version 1)
Quarter: 2024Q4

REPORT INFORMATION
  Report Type: Report from Study
  Country: US (occurrence: US)
  Receive Date: 20241205
  Receipt Date: 20241205
  Transmission Date: 20250114
  Serious: Yes (Other)
  Sender: ABBVIE
  Company Number: US-ABBVIE-6030359

PATIENT
  Age: 54 Year
  Sex: Female

DRUGS (1)
  1. HUMIRA [Suspect]
     Active Substance: ADALIMUMAB
     Indication: Product used for unknown indication
     Route: 058
     Dates: start: 20230701

REACTIONS (8)
  - Renal failure [Recovering/Resolving]
  - Dehydration [Recovering/Resolving]
  - Contrast media allergy [Recovering/Resolving]
  - Muscle spasms [Recovering/Resolving]
  - Hypovitaminosis [Unknown]
  - Magnesium deficiency [Unknown]
  - Asthenia [Unknown]
  - Impaired driving ability [Unknown]

NARRATIVE: CASE EVENT DATE: 20230701
